FAERS Safety Report 4799044-X (Version None)
Quarter: 2005Q4

REPORT INFORMATION
  Report Type: 
  Country: None (occurrence: None)
  Receive Date: 20051014
  Receipt Date: 20050811
  Transmission Date: 20060501
  Serious: Yes (Hospitalization)
  Sender: FDA-Public Use
  Company Number: ES-MERCK-0508ESP00006

PATIENT
  Age: 42 Year
  Sex: Male

DRUGS (9)
  1. ZETIA [Suspect]
     Indication: TYPE IIA HYPERLIPIDAEMIA
     Route: 048
     Dates: start: 20041228, end: 20050803
  2. ATORVASTATIN CALCIUM [Concomitant]
     Indication: TYPE IIA HYPERLIPIDAEMIA
     Route: 048
     Dates: end: 20040315
  3. ATORVASTATIN CALCIUM [Concomitant]
     Route: 048
     Dates: start: 20040316, end: 20050803
  4. PHENYTOIN [Concomitant]
     Indication: EPILEPSY
     Route: 065
  5. VERAPAMIL [Concomitant]
     Indication: ISCHAEMIC CARDIOMYOPATHY
     Route: 065
  6. AMLODIPINE BESYLATE [Concomitant]
     Indication: ISCHAEMIC CARDIOMYOPATHY
     Route: 065
  7. CLOPIDOGREL BISULFATE [Concomitant]
     Route: 065
  8. ISOSORBIDE MONONITRATE [Concomitant]
     Indication: ISCHAEMIC CARDIOMYOPATHY
     Route: 065
  9. VITAMIN E [Concomitant]
     Route: 065

REACTIONS (6)
  - ALANINE AMINOTRANSFERASE INCREASED [None]
  - ASPARTATE AMINOTRANSFERASE INCREASED [None]
  - BLOOD CREATINE PHOSPHOKINASE INCREASED [None]
  - BLOOD LACTATE DEHYDROGENASE INCREASED [None]
  - GAMMA-GLUTAMYLTRANSFERASE INCREASED [None]
  - MYOSITIS [None]
